FAERS Safety Report 6853097-3 (Version None)
Quarter: 2010Q3

REPORT INFORMATION
  Report Type: 
  Country: None (occurrence: None)
  Receive Date: 20100717
  Receipt Date: 20071203
  Transmission Date: 20110219
  Serious: Yes (Hospitalization)
  Sender: FDA-Public Use
  Company Number: US-PFIZER INC-2007103343

PATIENT

DRUGS (1)
  1. CHANTIX [Suspect]

REACTIONS (1)
  - CONVULSION [None]
